FAERS Safety Report 6670334-9 (Version None)
Quarter: 2010Q2

REPORT INFORMATION
  Report Type: 
  Country: None (occurrence: None)
  Receive Date: 20100405
  Receipt Date: 20100326
  Transmission Date: 20101027
  Serious: Yes (Other)
  Sender: FDA-Public Use
  Company Number: 2010SP018738

PATIENT
  Age: 67 Year
  Sex: Female

DRUGS (2)
  1. VIRAFERONPEG [Suspect]
     Indication: HEPATITIS C
     Dosage: ; SC
     Route: 058
  2. REBETOL [Suspect]
     Indication: HEPATITIS C
     Dosage: ; PO
     Route: 048

REACTIONS (5)
  - CONDITION AGGRAVATED [None]
  - DEHYDRATION [None]
  - HEPATITIS C [None]
  - SUICIDAL IDEATION [None]
  - TRANSAMINASES INCREASED [None]
